FAERS Safety Report 13544471 (Version 1)
Quarter: 2017Q2

REPORT INFORMATION
  Report Type: Spontaneous
  Country: BR (occurrence: BR)
  Receive Date: 20170515
  Receipt Date: 20170515
  Transmission Date: 20170830
  Serious: Yes (Other)
  Sender: FDA-Public Use
  Company Number: BR-009507513-1705BRA006914

PATIENT
  Age: 14 Year
  Sex: Female
  Weight: 62 kg

DRUGS (1)
  1. MERCILON [Suspect]
     Active Substance: DESOGESTREL\ETHINYL ESTRADIOL
     Indication: CONTRACEPTION
     Dosage: 1 TABLET DAILY WITH PAUSE OF 7 DAYS
     Route: 048
     Dates: start: 1991, end: 1999

REACTIONS (4)
  - Pregnancy on oral contraceptive [Recovered/Resolved]
  - Urinary tract infection [Recovered/Resolved]
  - Unintended pregnancy [Recovered/Resolved]
  - Migraine [Recovered/Resolved]

NARRATIVE: CASE EVENT DATE: 1993
